FAERS Safety Report 8383022-8 (Version None)
Quarter: 2012Q2

REPORT INFORMATION
  Report Type: 
  Country: None (occurrence: None)
  Receive Date: 20120524
  Receipt Date: 20120518
  Transmission Date: 20120825
  Serious: Yes (Hospitalization, Other)
  Sender: FDA-Public Use
  Company Number: US-AMGEN-USASP2012031470

PATIENT
  Age: 64 Year
  Sex: Male

DRUGS (1)
  1. ENBREL [Suspect]
     Indication: RHEUMATOID ARTHRITIS
     Dosage: 50 MG, QWK
     Dates: start: 20060101, end: 20111216

REACTIONS (8)
  - ARTERIOSCLEROSIS CORONARY ARTERY [None]
  - ALOPECIA [None]
  - RHEUMATOID ARTHRITIS [None]
  - MULTIPLE MYELOMA [None]
  - FATIGUE [None]
  - INFECTION [None]
  - JOINT STIFFNESS [None]
  - ACUTE MYOCARDIAL INFARCTION [None]
